FAERS Safety Report 20791701 (Version 5)
Quarter: 2024Q4

REPORT INFORMATION
  Report Type: Report from Study
  Country: US (occurrence: US)
  Receive Date: 20220505
  Receipt Date: 20241015
  Transmission Date: 20250115
  Serious: Yes (Life-Threatening)
  Sender: NOVARTIS
  Company Number: US-NOVARTISTESTPH-NVSC2022US103386

PATIENT
  Sex: Female

DRUGS (1)
  1. ENTRESTO [Suspect]
     Active Substance: SACUBITRIL\VALSARTAN
     Indication: Product used for unknown indication
     Dosage: 1 DOSAGE FORM (24/26 MG), BID
     Route: 048
     Dates: start: 20220428

REACTIONS (4)
  - Pain [Unknown]
  - Feeling abnormal [Unknown]
  - Hypotension [Recovering/Resolving]
  - Weight decreased [Unknown]
